FAERS Safety Report 23226847 (Version 2)
Quarter: 2024Q1

REPORT INFORMATION
  Report Type: Report from Study
  Country: US (occurrence: None)
  Receive Date: 20231124
  Receipt Date: 20240116
  Transmission Date: 20240410
  Serious: Yes (Death)
  Sender: FDA-Public Use
  Company Number: 2023A265230

PATIENT

DRUGS (2)
  1. BREZTRI [Suspect]
     Active Substance: BUDESONIDE\FORMOTEROL\GLYCOPYRROLATE
     Route: 055
  2. DALIRESP [Suspect]
     Active Substance: ROFLUMILAST
     Route: 048

REACTIONS (1)
  - Death [Fatal]
